FAERS Safety Report 8662091 (Version 2)
Quarter: 2014Q3

REPORT INFORMATION
  Report Type: Spontaneous
  Country: US (occurrence: None)
  Receive Date: 20120627
  Receipt Date: 20140807
  Transmission Date: 20150326
  Serious: Yes (Other)
  Sender: FDA-Public Use
  Company Number: JPI-P-021182

PATIENT
  Age: 30 Year
  Sex: Female
  Weight: 87.7 kg

DRUGS (7)
  1. TIZANIDINE HYDROCHLORIDE. [Concomitant]
     Active Substance: TIZANIDINE HYDROCHLORIDE
  2. METHYLPHENIDATE [Concomitant]
     Active Substance: METHYLPHENIDATE
  3. VITAMIN D (COLECALCIFEROL) [Concomitant]
  4. XYREM [Suspect]
     Active Substance: SODIUM OXYBATE
     Indication: CATAPLEXY
     Route: 048
     Dates: start: 20120417
  5. PRAMIPEXOLE DIHYCHLORIDE [Concomitant]
     Active Substance: PRAMIPEXOLE DIHYDROCHLORIDE
  6. XYREM [Suspect]
     Active Substance: SODIUM OXYBATE
     Indication: NARCOLEPSY
     Route: 048
     Dates: start: 20120417
  7. NIFEDIPINE. [Concomitant]
     Active Substance: NIFEDIPINE

REACTIONS (9)
  - Abdominal distension [None]
  - Pyrexia [None]
  - Hallucination [None]
  - Decreased appetite [None]
  - Cholelithiasis [None]
  - Cholelithotomy [None]
  - Vomiting [None]
  - Somnambulism [None]
  - Somnolence [None]

NARRATIVE: CASE EVENT DATE: 20120422
